FAERS Safety Report 15462870 (Version 2)
Quarter: 2018Q4

REPORT INFORMATION
  Report Type: Spontaneous
  Country: JP (occurrence: JP)
  Receive Date: 20181004
  Receipt Date: 20181009
  Transmission Date: 20190204
  Serious: Yes (Other)
  Sender: FDA-Public Use
  Company Number: JP-TEVA-2018-JP-001612J

PATIENT
  Age: 52 Year
  Sex: Male

DRUGS (7)
  1. EXCEGRAN [Concomitant]
     Active Substance: ZONISAMIDE
     Dosage: 100 MILLIGRAM DAILY;
     Route: 048
  2. LOPEMIN [Concomitant]
     Active Substance: LOPERAMIDE HYDROCHLORIDE
     Dosage: 2 DOSAGE FORMS DAILY;
     Route: 048
  3. DEPAKENE [Concomitant]
     Active Substance: VALPROIC ACID
     Dosage: 1800 MILLIGRAM DAILY;
     Route: 048
  4. THYRADIN S [Concomitant]
     Active Substance: LEVOTHYROXINE SODIUM
     Dosage: 50 MICROGRAM DAILY;
     Route: 048
  5. KALIMATE [Concomitant]
     Active Substance: CALCIUM POLYSTYRENE SULFONATE
     Dosage: 16.2 GRAM DAILY;
     Route: 048
  6. HUMALOG [Concomitant]
     Active Substance: INSULIN LISPRO
     Dosage: 30 DOSAGE FORMS DAILY;
     Route: 065
  7. ACTOS [Suspect]
     Active Substance: PIOGLITAZONE HYDROCHLORIDE
     Indication: PRODUCT USED FOR UNKNOWN INDICATION
     Dosage: 30 MILLIGRAM DAILY;
     Route: 048

REACTIONS (2)
  - Foot amputation [Unknown]
  - Oedema peripheral [Not Recovered/Not Resolved]
